FAERS Safety Report 5574101-9 (Version None)
Quarter: 2007Q4

REPORT INFORMATION
  Report Type: 
  Country: None (occurrence: None)
  Receive Date: 20071221
  Receipt Date: 20071212
  Transmission Date: 20080405
  Serious: Yes (Hospitalization, Other)
  Sender: FDA-Public Use
  Company Number: 2006EN000106

PATIENT
  Age: 7 Month
  Sex: Male
  Weight: 10 kg

DRUGS (14)
  1. ADAGEN [Suspect]
     Indication: COMBINED IMMUNODEFICIENCY
     Dosage: 60 IU/KG; BIW; IM; 30 IU/KG; BIW; IM 31 IU/KG; BIW; IM; 27 IU/KG; BIW; IM; 25 IU/KG; BIW; IM
     Route: 030
     Dates: start: 20050101, end: 20050101
  2. ADAGEN [Suspect]
     Indication: COMBINED IMMUNODEFICIENCY
     Dosage: 60 IU/KG; BIW; IM; 30 IU/KG; BIW; IM 31 IU/KG; BIW; IM; 27 IU/KG; BIW; IM; 25 IU/KG; BIW; IM
     Route: 030
     Dates: start: 20050321, end: 20050101
  3. ADAGEN [Suspect]
     Indication: COMBINED IMMUNODEFICIENCY
     Dosage: 60 IU/KG; BIW; IM; 30 IU/KG; BIW; IM 31 IU/KG; BIW; IM; 27 IU/KG; BIW; IM; 25 IU/KG; BIW; IM
     Route: 030
     Dates: start: 20050114, end: 20050320
  4. ADAGEN [Suspect]
     Indication: COMBINED IMMUNODEFICIENCY
     Dosage: 60 IU/KG; BIW; IM; 30 IU/KG; BIW; IM 31 IU/KG; BIW; IM; 27 IU/KG; BIW; IM; 25 IU/KG; BIW; IM
     Route: 030
     Dates: start: 20060101, end: 20070101
  5. ADAGEN [Suspect]
     Indication: COMBINED IMMUNODEFICIENCY
     Dosage: 60 IU/KG; BIW; IM; 30 IU/KG; BIW; IM 31 IU/KG; BIW; IM; 27 IU/KG; BIW; IM; 25 IU/KG; BIW; IM
     Route: 030
     Dates: start: 20070101
  6. AMPHOTERICIN B [Concomitant]
  7. IMMUNOGLOBULINS [Concomitant]
  8. ACYCLOVIR [Concomitant]
  9. COTRIM [Concomitant]
  10. PHENOBARBITAL TAB [Concomitant]
  11. GANCICLOVIR [Concomitant]
  12. FOSCARNET [Concomitant]
  13. VALPROIC ACID [Concomitant]
  14. TOPIRAMATE [Concomitant]

REACTIONS (3)
  - ANAEMIA HAEMOLYTIC AUTOIMMUNE [None]
  - EPILEPSY [None]
  - MALAISE [None]
